FAERS Safety Report 13665898 (Version 2)
Quarter: 2017Q2

REPORT INFORMATION
  Report Type: Spontaneous
  Country: US (occurrence: US)
  Receive Date: 20170619
  Receipt Date: 20170622
  Transmission Date: 20170830
  Serious: No
  Sender: FDA-Public Use
  Company Number: US-009507513-1706USA006280

PATIENT
  Age: 16 Year
  Sex: Female
  Weight: 58.96 kg

DRUGS (1)
  1. NEXPLANON [Suspect]
     Active Substance: ETONOGESTREL
     Indication: CONTRACEPTION
     Dosage: 3 YEAR IMPLANT, INSIDE THE LEFT ARM
     Route: 059
     Dates: start: 20160607

REACTIONS (2)
  - Amenorrhoea [Recovered/Resolved]
  - Menstruation normal [Unknown]

NARRATIVE: CASE EVENT DATE: 20160607
